FAERS Safety Report 10373230 (Version 2)
Quarter: 2014Q3

REPORT INFORMATION
  Report Type: Spontaneous
  Country: US (occurrence: US)
  Receive Date: 20140808
  Receipt Date: 20140808
  Transmission Date: 20150326
  Serious: No
  Sender: FDA-Public Use
  Company Number: US-BRISTOL-MYERS SQUIBB COMPANY-20230397

PATIENT
  Age: 48 Year
  Sex: Male

DRUGS (4)
  1. VARENICLINE TARTRATE [Concomitant]
     Active Substance: VARENICLINE TARTRATE
  2. SPRYCEL [Suspect]
     Active Substance: DASATINIB
     Indication: CHRONIC MYELOID LEUKAEMIA
     Dosage: TABLETS 100MG
     Route: 048
     Dates: start: 20130625
  3. OXYCODONE [Concomitant]
     Active Substance: OXYCODONE
  4. SIMVASTATIN. [Concomitant]
     Active Substance: SIMVASTATIN

REACTIONS (1)
  - Fatigue [Unknown]

NARRATIVE: CASE EVENT DATE: 20130625
